FAERS Safety Report 4907271-3 (Version None)
Quarter: 2006Q1

REPORT INFORMATION
  Report Type: 
  Country: None (occurrence: None)
  Receive Date: 20060207
  Receipt Date: 20060125
  Transmission Date: 20060701
  Serious: Yes (Hospitalization, Disabling)
  Sender: FDA-Public Use
  Company Number: 412370

PATIENT
  Age: 20 Year
  Sex: Female
  Weight: 68 kg

DRUGS (2)
  1. ACCUTANE [Suspect]
     Indication: ACNE
     Dosage: ORAL
     Dates: start: 19990715, end: 19990915
  2. IBUPROFEN [Concomitant]

REACTIONS (45)
  - ALOPECIA [None]
  - ANAL FISSURE [None]
  - ANHEDONIA [None]
  - ANXIETY [None]
  - AUTOANTIBODY POSITIVE [None]
  - BACK PAIN [None]
  - BRONCHITIS [None]
  - COLITIS ULCERATIVE [None]
  - COOMBS DIRECT TEST POSITIVE [None]
  - CRYPTOGENIC ORGANIZING PNEUMONIA [None]
  - CULTURE STOOL POSITIVE [None]
  - DEHYDRATION [None]
  - DRUG DEPENDENCE [None]
  - DRUG HYPERSENSITIVITY [None]
  - DRUG INEFFECTIVE [None]
  - ECONOMIC PROBLEM [None]
  - FUNGAL INFECTION [None]
  - HAEMORRHOIDS [None]
  - HEPATIC ENZYME INCREASED [None]
  - INFECTION [None]
  - INFLAMMATORY BOWEL DISEASE [None]
  - IRON DEFICIENCY ANAEMIA [None]
  - IRRITABLE BOWEL SYNDROME [None]
  - LUNG NEOPLASM [None]
  - MICROCYTIC ANAEMIA [None]
  - MULTI-ORGAN DISORDER [None]
  - MYALGIA [None]
  - NECK INJURY [None]
  - PLATELET AGGREGATION ABNORMAL [None]
  - PNEUMONIA [None]
  - PNEUMONITIS [None]
  - PULMONARY EMBOLISM [None]
  - RHEUMATOID ARTHRITIS [None]
  - SEPTIC EMBOLUS [None]
  - SINUS TACHYCARDIA [None]
  - SMEAR CERVIX ABNORMAL [None]
  - STRESS [None]
  - THERAPY NON-RESPONDER [None]
  - THROMBOCYTHAEMIA [None]
  - THROMBOPHLEBITIS SEPTIC [None]
  - TREATMENT NONCOMPLIANCE [None]
  - TUBERCULOSIS [None]
  - VASCULITIS [None]
  - WEGENER'S GRANULOMATOSIS [None]
  - WHITE BLOOD CELLS STOOL POSITIVE [None]
